FAERS Safety Report 7629265-X (Version None)
Quarter: 2011Q3

REPORT INFORMATION
  Report Type: 
  Country: None (occurrence: None)
  Receive Date: 20110722
  Receipt Date: 20110719
  Transmission Date: 20111222
  Serious: Yes (Death)
  Sender: FDA-Public Use
  Company Number: US-PFIZER INC-2010001518

PATIENT
  Age: 58 Year
  Sex: Male

DRUGS (5)
  1. ALPRAZOLAM [Suspect]
     Dosage: UNK
  2. CHARCOAL, ACTIVATED [Suspect]
     Dosage: UNK
     Route: 048
     Dates: end: 20080101
  3. ETHANOL [Suspect]
     Dosage: UNK
     Dates: end: 20080101
  4. ZOLPIDEM [Suspect]
  5. CITALOPRAM HYDROBROMIDE [Suspect]
     Dosage: UNK
     Dates: end: 20080101

REACTIONS (1)
  - COMPLETED SUICIDE [None]
